FAERS Safety Report 15858663 (Version 2)
Quarter: 2019Q1

REPORT INFORMATION
  Report Type: Spontaneous
  Country: US (occurrence: US)
  Receive Date: 20190123
  Receipt Date: 20190308
  Transmission Date: 20190417
  Serious: No
  Sender: FDA-Public Use
  Company Number: US-PFIZER INC-2019025497

PATIENT
  Sex: Male

DRUGS (1)
  1. EMBEDA [Suspect]
     Active Substance: MORPHINE SULFATE\NALTREXONE HYDROCHLORIDE
     Indication: PAIN
     Dosage: UNK, 2X/DAY
     Route: 048
     Dates: start: 2018, end: 201901

REACTIONS (1)
  - Drug screen positive [Unknown]
